FAERS Safety Report 7655226-0 (Version None)
Quarter: 2011Q3

REPORT INFORMATION
  Report Type: 
  Country: None (occurrence: None)
  Receive Date: 20110729
  Receipt Date: 20110713
  Transmission Date: 20111222
  Serious: Yes (Hospitalization)
  Sender: FDA-Public Use
  Company Number: DSA_47220_2011

PATIENT
  Age: 5 Year
  Sex: Female

DRUGS (3)
  1. ENALAPRIL MALEATE [Suspect]
     Indication: PRODUCT USED FOR UNKNOWN INDICATION
     Dosage: DF ORAL
     Route: 048
  2. DIURETICS (DIURETIC) [Suspect]
     Indication: PRODUCT USED FOR UNKNOWN INDICATION
     Dosage: DF INTRAVENOUS
     Route: 042
  3. BENZBROMARONE [Concomitant]

REACTIONS (9)
  - OEDEMA PERIPHERAL [None]
  - WHITE BLOOD CELL COUNT DECREASED [None]
  - BONE DISORDER [None]
  - FEELING HOT [None]
  - RENAL IMPAIRMENT [None]
  - BLOOD UREA INCREASED [None]
  - GOUT [None]
  - BLOOD URIC ACID INCREASED [None]
  - CALCINOSIS [None]
